FAERS Safety Report 23679706 (Version 2)
Quarter: 2024Q2

REPORT INFORMATION
  Report Type: Spontaneous
  Country: EE (occurrence: EE)
  Receive Date: 20240327
  Receipt Date: 20240417
  Transmission Date: 20240716
  Serious: Yes (Hospitalization, Other)
  Sender: FDA-Public Use
  Company Number: EE-SUN PHARMACEUTICAL INDUSTRIES LTD-2024R1-438254

PATIENT
  Age: 81 Year
  Sex: Male

DRUGS (1)
  1. PREDNISONE [Suspect]
     Active Substance: PREDNISONE
     Indication: Idiopathic interstitial pneumonia
     Dosage: 50 MILLIGRAM, DAILY
     Route: 065

REACTIONS (5)
  - Urinary tract infection enterococcal [Unknown]
  - Listeria sepsis [Unknown]
  - Pneumonia fungal [Unknown]
  - Acute kidney injury [Unknown]
  - Respiratory failure [Unknown]
